FAERS Safety Report 13581510 (Version 1)
Quarter: 2017Q2

REPORT INFORMATION
  Report Type: Spontaneous
  Country: US (occurrence: US)
  Receive Date: 20170525
  Receipt Date: 20170525
  Transmission Date: 20170830
  Serious: Yes (Life-Threatening, Hospitalization, Disabling, Other)
  Sender: FDA-Public Use
  Company Number: US-GLAXOSMITHKLINE-US2017077820

PATIENT
  Sex: Male

DRUGS (1)
  1. BENLYSTA [Suspect]
     Active Substance: BELIMUMAB
     Indication: PRODUCT USED FOR UNKNOWN INDICATION
     Dosage: 10 MG/KG, U
     Dates: start: 20170519

REACTIONS (5)
  - Bacterial infection [Unknown]
  - Septic shock [Recovering/Resolving]
  - Thrombocytopenia [Unknown]
  - White blood cell count abnormal [Unknown]
  - Cellulitis [Unknown]

NARRATIVE: CASE EVENT DATE: 20170520
